FAERS Safety Report 20047190 (Version 4)
Quarter: 2022Q1

REPORT INFORMATION
  Report Type: Other
  Country: IL (occurrence: None)
  Receive Date: 20211109
  Receipt Date: 20220309
  Transmission Date: 20220423
  Serious: Yes (Hospitalization, Other)
  Sender: FDA-Public Use
  Company Number: IL-ROCHE-2949320

PATIENT
  Age: 44 Year
  Sex: Female

DRUGS (1)
  1. PRALSETINIB [Suspect]
     Active Substance: PRALSETINIB
     Indication: Thyroid cancer
     Dosage: 400MG/DAY
     Route: 048

REACTIONS (3)
  - Confusional state [Unknown]
  - Pancreatitis [Unknown]
  - Limbic encephalitis [Unknown]

NARRATIVE: CASE EVENT DATE: 20210101
